FAERS Safety Report 8871478 (Version 2)
Quarter: 2013Q2

REPORT INFORMATION
  Report Type: Spontaneous
  Country: US (occurrence: US)
  Receive Date: 20121023
  Receipt Date: 20130412
  Transmission Date: 20140414
  Serious: Yes (Hospitalization)
  Sender: FDA-Public Use
  Company Number: US-ASTELLAS-2012US007954

PATIENT
  Age: 42 Year
  Sex: Male
  Weight: 117 kg

DRUGS (5)
  1. PROGRAF [Suspect]
     Indication: RENAL TRANSPLANT
     Dosage: 10 MG, BID
     Route: 048
     Dates: start: 20080826
  2. PROGRAF [Suspect]
     Dosage: 9 MG, BID
     Route: 048
  3. PROGRAF [Suspect]
     Dosage: 3 MG, BID
     Route: 048
  4. MYFORTIC [Concomitant]
     Indication: PRODUCT USED FOR UNKNOWN INDICATION
     Dosage: 720 MG, BID
     Route: 065
  5. PREDNISONE [Concomitant]
     Indication: PRODUCT USED FOR UNKNOWN INDICATION
     Dosage: 5 MG, UID/QD
     Route: 065

REACTIONS (6)
  - Transplant failure [Unknown]
  - Complications of transplanted kidney [Unknown]
  - Kidney transplant rejection [Unknown]
  - Treatment noncompliance [Unknown]
  - Catheter site haemorrhage [Recovered/Resolved]
  - Haemoglobin decreased [Unknown]
